FAERS Safety Report 6362137-X (Version None)
Quarter: 2009Q3

REPORT INFORMATION
  Report Type: 
  Country: None (occurrence: None)
  Receive Date: 20090918
  Receipt Date: 20090914
  Transmission Date: 20100115
  Serious: Yes (Other)
  Sender: FDA-Public Use
  Company Number: US-JNJCH-2009024713

PATIENT
  Age: 50 Year
  Sex: Male
  Weight: 109.8 kg

DRUGS (4)
  1. LISTERINE WHITENING PLUS RESTORING FLUORIDE RINSE [Suspect]
     Indication: DENTAL CARE
     Dosage: TEXT:10 ML ONCE
     Route: 048
     Dates: start: 20090911, end: 20090911
  2. B12 ^RECIP^ [Concomitant]
     Indication: DRUG USE FOR UNKNOWN INDICATION
     Dosage: TEXT:UNKNOWN
     Route: 065
  3. VITAMIN B COMPLEX CAP [Concomitant]
     Indication: DRUG USE FOR UNKNOWN INDICATION
     Dosage: TEXT:UNKNOWN
     Route: 065
  4. VITAMIN D [Concomitant]
     Indication: DRUG USE FOR UNKNOWN INDICATION
     Dosage: TEXT:UNKNOWN
     Route: 065

REACTIONS (4)
  - LIP SWELLING [None]
  - OEDEMA MOUTH [None]
  - ORAL PAIN [None]
  - PHARYNGEAL OEDEMA [None]
